FAERS Safety Report 8056721-5 (Version None)
Quarter: 2012Q1

REPORT INFORMATION
  Report Type: 
  Country: None (occurrence: None)
  Receive Date: 20120119
  Receipt Date: 20110517
  Transmission Date: 20120608
  Serious: No
  Sender: FDA-Public Use
  Company Number: US-SANOFI-AVENTIS-2011SA033875

PATIENT
  Age: 66 Year
  Sex: Female
  Weight: 63 kg

DRUGS (5)
  1. METOPROLOL TARTRATE [Concomitant]
  2. VASOTEC [Concomitant]
  3. LASIX [Suspect]
     Route: 048
  4. LORTAB [Concomitant]
  5. ROBAXIN [Concomitant]

REACTIONS (1)
  - FEELING HOT [None]
